FAERS Safety Report 14199646 (Version 1)
Quarter: 2017Q4

REPORT INFORMATION
  Report Type: Spontaneous
  Country: FR (occurrence: FR)
  Receive Date: 20171117
  Receipt Date: 20171117
  Transmission Date: 20180321
  Serious: Yes (Hospitalization, Other)
  Sender: FDA-Public Use
  Company Number: FR-SA-2017SA222750

PATIENT
  Age: 22 Year
  Sex: Female
  Weight: 50 kg

DRUGS (27)
  1. LANTUS [Suspect]
     Active Substance: INSULIN GLARGINE
     Indication: TYPE 1 DIABETES MELLITUS
     Route: 058
  2. DONORMYL (DOXYLAMINE\SODIUM BROMIDE\SODIUM PHOSPHATE, DIBASIC, ANHYDROUS\SODIUM SULFATE) [Concomitant]
     Active Substance: DOXYLAMINE\SODIUM BROMIDE\SODIUM PHOSPHATE, DIBASIC, ANHYDROUS\SODIUM SULFATE
     Route: 065
     Dates: start: 20170315
  3. ALPRAZOLAM. [Concomitant]
     Active Substance: ALPRAZOLAM
     Route: 065
     Dates: start: 20170425, end: 20170425
  4. ADRENALINE W/XYLOCAINE [Concomitant]
     Route: 065
     Dates: start: 20170426, end: 20170426
  5. CYTOTEC [Concomitant]
     Active Substance: MISOPROSTOL
     Route: 065
     Dates: start: 20170426, end: 20170426
  6. NOVORAPID [Suspect]
     Active Substance: INSULIN ASPART
     Indication: TYPE 1 DIABETES MELLITUS
     Dosage: 100 IU/ML DOSE:13 UNIT(S)
     Route: 058
  7. PARACETAMOL [Concomitant]
     Active Substance: ACETAMINOPHEN
     Route: 065
     Dates: start: 2017, end: 2017
  8. BIPROFENID [Concomitant]
     Active Substance: KETOPROFEN
     Route: 065
     Dates: start: 2017, end: 2017
  9. CHIROCAINE [Concomitant]
     Active Substance: LEVOBUPIVACAINE HYDROCHLORIDE
     Route: 065
     Dates: start: 20170426, end: 20170426
  10. CEFAZOLINE [Concomitant]
     Active Substance: CEFAZOLIN SODIUM
     Route: 065
     Dates: start: 20170427, end: 20170427
  11. LANTUS [Suspect]
     Active Substance: INSULIN GLARGINE
     Indication: TYPE 1 DIABETES MELLITUS
     Route: 058
     Dates: start: 20140330
  12. MIFEGYNE [Concomitant]
     Active Substance: MIFEPRISTONE
     Route: 065
     Dates: start: 20170424, end: 20170424
  13. SUFENTA [Concomitant]
     Active Substance: SUFENTANIL CITRATE
     Route: 065
     Dates: start: 20170426, end: 20170427
  14. RINGERS SOLUTION [Concomitant]
     Active Substance: CALCIUM CHLORIDE\POTASSIUM CHLORIDE\SODIUM CHLORIDE
     Route: 065
     Dates: start: 20170426, end: 20170427
  15. NOVORAPID [Suspect]
     Active Substance: INSULIN ASPART
     Indication: TYPE 1 DIABETES MELLITUS
     Dosage: 100 IU/ML DOSE:30 UNIT(S)
     Route: 058
  16. ASPIRINE [Concomitant]
     Active Substance: ASPIRIN
     Route: 065
     Dates: start: 20170201
  17. NICOTINE. [Concomitant]
     Active Substance: NICOTINE
     Route: 065
     Dates: start: 20170426, end: 20170426
  18. ONDANSETRON [Concomitant]
     Active Substance: ONDANSETRON
     Route: 065
     Dates: start: 20170426, end: 20170426
  19. GLUCOSE [Concomitant]
     Active Substance: DEXTROSE
     Route: 065
     Dates: start: 20170426, end: 20170426
  20. SYNTOCINON [Concomitant]
     Active Substance: OXYTOCIN
     Route: 065
     Dates: start: 20170427, end: 20170427
  21. SPASFON [Concomitant]
     Active Substance: PHLOROGLUCINOL\1,3,5-TRIMETHOXYBENZENE
     Route: 065
     Dates: start: 2017, end: 2017
  22. ATARAX [Concomitant]
     Active Substance: HYDROXYZINE HYDROCHLORIDE
     Route: 065
     Dates: start: 20170426, end: 20170426
  23. IBUPROFENE [Concomitant]
     Active Substance: IBUPROFEN
     Route: 065
     Dates: start: 20170427, end: 20170427
  24. SPECIAFOLDINE [Concomitant]
     Active Substance: FOLIC ACID
     Route: 065
     Dates: start: 20170117, end: 20170315
  25. TARDYFERON [Concomitant]
     Active Substance: FERROUS SULFATE
     Dosage: 06-APR-2017
     Route: 065
     Dates: start: 201704, end: 201704
  26. FLUCONAZOLE. [Concomitant]
     Active Substance: FLUCONAZOLE
     Route: 065
     Dates: start: 20170425, end: 20170425
  27. DONORMYL (DOXYLAMINE\SODIUM BROMIDE\SODIUM PHOSPHATE, DIBASIC, ANHYDROUS\SODIUM SULFATE) [Concomitant]
     Active Substance: DOXYLAMINE\SODIUM BROMIDE\SODIUM PHOSPHATE, DIBASIC, ANHYDROUS\SODIUM SULFATE
     Route: 065
     Dates: start: 20170315

REACTIONS (6)
  - Hemivertebra [Recovered/Resolved with Sequelae]
  - Diabetic retinopathy [Not Recovered/Not Resolved]
  - Congenital anomaly [Unknown]
  - Exposure during pregnancy [Unknown]
  - Hydrocephalus [Recovered/Resolved]
  - Abortion induced [Unknown]

NARRATIVE: CASE EVENT DATE: 20161210
